FAERS Safety Report 9877038 (Version 40)
Quarter: 2021Q1

REPORT INFORMATION
  Report Type: Other
  Country: CA (occurrence: CA)
  Receive Date: 20140206
  Receipt Date: 20210215
  Transmission Date: 20210420
  Serious: Yes (Other)
  Sender: FDA-Public Use
  Company Number: CA-ROCHE-1224468

PATIENT
  Age: 59 Year
  Sex: Female
  Weight: 97 kg

DRUGS (39)
  1. ACTEMRA [Suspect]
     Active Substance: TOCILIZUMAB
     Route: 058
     Dates: start: 2015
  2. DOCUSATE [Concomitant]
     Active Substance: DOCUSATE
  3. PREMARIN [Concomitant]
     Active Substance: ESTROGENS, CONJUGATED
     Dosage: VAGINAL CREAM
  4. SALBUTAMOL [Concomitant]
     Active Substance: ALBUTEROL
     Dosage: AS REQUIRED
  5. ACLASTA [Concomitant]
     Active Substance: ZOLEDRONIC ACID
  6. BISOPROLOL [Concomitant]
     Active Substance: BISOPROLOL
  7. ACTEMRA [Suspect]
     Active Substance: TOCILIZUMAB
     Route: 042
     Dates: start: 20140529, end: 20140529
  8. ACTEMRA [Suspect]
     Active Substance: TOCILIZUMAB
     Dosage: EVERY OTHER WEEK
     Route: 058
     Dates: start: 2017, end: 2019
  9. MACROBID [Suspect]
     Active Substance: NITROFURANTOIN\NITROFURANTOIN MONOHYDRATE
     Indication: PRODUCT USED FOR UNKNOWN INDICATION
     Route: 065
  10. REMICADE [Suspect]
     Active Substance: INFLIXIMAB
     Indication: PRODUCT USED FOR UNKNOWN INDICATION
     Route: 065
  11. VOLTAREN [Concomitant]
     Active Substance: DICLOFENAC SODIUM
  12. TOPIRAMATE. [Concomitant]
     Active Substance: TOPIRAMATE
  13. ACTEMRA [Suspect]
     Active Substance: TOCILIZUMAB
     Route: 042
     Dates: start: 20140130, end: 20140306
  14. ACTEMRA [Suspect]
     Active Substance: TOCILIZUMAB
     Route: 042
     Dates: start: 20140904, end: 20140904
  15. ACTEMRA [Suspect]
     Active Substance: TOCILIZUMAB
     Route: 058
     Dates: start: 201504
  16. TARO?TERCONAZOLE [Concomitant]
     Active Substance: TERCONAZOLE
  17. DOCUSATE SODIUM. [Concomitant]
     Active Substance: DOCUSATE SODIUM
  18. D?TABS [Concomitant]
     Active Substance: CHOLECALCIFEROL
  19. FLUCONAZOLE. [Concomitant]
     Active Substance: FLUCONAZOLE
  20. CRESTOR [Concomitant]
     Active Substance: ROSUVASTATIN CALCIUM
  21. ACTEMRA [Suspect]
     Active Substance: TOCILIZUMAB
     Indication: RHEUMATOID ARTHRITIS
     Dosage: UNKNOWN DOSE
     Route: 042
     Dates: start: 2011, end: 20140904
  22. ACTEMRA [Suspect]
     Active Substance: TOCILIZUMAB
     Route: 058
     Dates: start: 20150122
  23. CYMBALTA [Concomitant]
     Active Substance: DULOXETINE HYDROCHLORIDE
  24. CYMBALTA [Concomitant]
     Active Substance: DULOXETINE HYDROCHLORIDE
  25. NOVO?SEMIDE [Concomitant]
     Active Substance: FUROSEMIDE
  26. VENTOLIN [Suspect]
     Active Substance: ALBUTEROL SULFATE
     Indication: PRODUCT USED FOR UNKNOWN INDICATION
     Route: 065
  27. MYOFLEXIN [Concomitant]
  28. SYNTHROID [Concomitant]
     Active Substance: LEVOTHYROXINE SODIUM
  29. ACTEMRA [Suspect]
     Active Substance: TOCILIZUMAB
     Route: 042
     Dates: start: 20131024, end: 20131024
  30. ACTEMRA [Suspect]
     Active Substance: TOCILIZUMAB
     Indication: RHEUMATOID ARTHRITIS
     Route: 058
     Dates: start: 2011, end: 201302
  31. HYDERM [HYDROCORTISONE] [Concomitant]
  32. ATORVASTATIN [Concomitant]
     Active Substance: ATORVASTATIN
  33. ACTEMRA [Suspect]
     Active Substance: TOCILIZUMAB
     Route: 042
     Dates: start: 20130411, end: 20130926
  34. ACTEMRA [Suspect]
     Active Substance: TOCILIZUMAB
     Route: 042
     Dates: start: 20140626, end: 20140724
  35. ACTEMRA [Suspect]
     Active Substance: TOCILIZUMAB
     Dosage: ONGOING
     Route: 042
     Dates: start: 20190610
  36. ACTEMRA [Suspect]
     Active Substance: TOCILIZUMAB
     Route: 042
     Dates: start: 20140501, end: 20140501
  37. CRANBERRY. [Concomitant]
     Active Substance: CRANBERRY
  38. PREDNISONE. [Concomitant]
     Active Substance: PREDNISONE
  39. TERAZOL 3 [Concomitant]
     Active Substance: TERCONAZOLE

REACTIONS (50)
  - Peripheral swelling [Not Recovered/Not Resolved]
  - Aortic disorder [Not Recovered/Not Resolved]
  - Loss of consciousness [Unknown]
  - Fibromyalgia [Not Recovered/Not Resolved]
  - Drug intolerance [Unknown]
  - Bronchitis [Not Recovered/Not Resolved]
  - Hepatic enzyme increased [Unknown]
  - Dyspnoea [Unknown]
  - Urinary tract infection [Not Recovered/Not Resolved]
  - Musculoskeletal stiffness [Unknown]
  - Hot flush [Not Recovered/Not Resolved]
  - Erythema [Not Recovered/Not Resolved]
  - Pain [Unknown]
  - Weight decreased [Recovering/Resolving]
  - Tachycardia [Unknown]
  - Fatigue [Unknown]
  - Muscle spasms [Recovered/Resolved]
  - Joint stiffness [Not Recovered/Not Resolved]
  - Swelling [Not Recovered/Not Resolved]
  - Pain in extremity [Not Recovered/Not Resolved]
  - Body temperature increased [Unknown]
  - Increased upper airway secretion [Unknown]
  - Furuncle [Recovered/Resolved]
  - Abdominal distension [Unknown]
  - Heart rate increased [Unknown]
  - Therapeutic product effect decreased [Unknown]
  - Rheumatoid arthritis [Not Recovered/Not Resolved]
  - Myalgia [Unknown]
  - Vaginal infection [Unknown]
  - Feeling hot [Unknown]
  - Hypotension [Unknown]
  - Sinusitis [Not Recovered/Not Resolved]
  - Hypersomnia [Not Recovered/Not Resolved]
  - Thyroid disorder [Unknown]
  - Viral infection [Unknown]
  - Osteoarthritis [Unknown]
  - Fungal skin infection [Recovering/Resolving]
  - Neoplasm [Not Recovered/Not Resolved]
  - Arthralgia [Not Recovered/Not Resolved]
  - Pruritus [Not Recovered/Not Resolved]
  - Secretion discharge [Unknown]
  - Constipation [Not Recovered/Not Resolved]
  - Palpitations [Unknown]
  - Nasal congestion [Unknown]
  - Joint warmth [Unknown]
  - Weight increased [Recovering/Resolving]
  - Nasopharyngitis [Recovered/Resolved]
  - Feeling hot [Unknown]
  - Fatigue [Not Recovered/Not Resolved]
  - C-reactive protein increased [Unknown]

NARRATIVE: CASE EVENT DATE: 2013
